FAERS Safety Report 10263147 (Version 2)
Quarter: 2014Q2

REPORT INFORMATION
  Report Type: Report from Study
  Country: US (occurrence: US)
  Receive Date: 20140626
  Receipt Date: 20140626
  Transmission Date: 20141212
  Serious: Yes (Death)
  Sender: FDA-Public Use
  Company Number: US-MYLANLABS-2014S1003272

PATIENT
  Age: 77 Year
  Sex: Female

DRUGS (16)
  1. CLOZAPINE TABLETS [Suspect]
     Indication: SCHIZOPHRENIA
     Route: 048
     Dates: end: 2014
  2. CLOZAPINE TABLETS [Suspect]
     Indication: SCHIZOPHRENIA
     Route: 048
     Dates: end: 2014
  3. TYLENOL [Concomitant]
     Dosage: MAY BE GIVEN PO OR VIA RECTAL SUPPOSITORY
     Route: 048
  4. ALBUTEROL [Concomitant]
     Route: 055
  5. DIGOXIN [Concomitant]
  6. DEPAKOTE [Concomitant]
  7. FAMOTIDINE [Concomitant]
  8. FLEET LAXATIVE [Concomitant]
  9. FUROSEMIDE [Concomitant]
  10. KEPPRA [Concomitant]
  11. MILK OF MAGNESIA [Concomitant]
     Indication: CONSTIPATION
  12. NITROFURANTOIN [Concomitant]
     Indication: URINARY TRACT INFECTION
  13. POLYETHYLENE GLYCOL [Concomitant]
  14. ZINC OXIDE SIMPLE OINTMENT [Concomitant]
     Dosage: RILEY BUTT CREAM
  15. SORBITOL [Concomitant]
  16. SCOPOLAMINE PCH [Concomitant]

REACTIONS (1)
  - Death [Fatal]
